FAERS Safety Report 6801436-1 (Version None)
Quarter: 2010Q2

REPORT INFORMATION
  Report Type: 
  Country: None (occurrence: None)
  Receive Date: 20100629
  Receipt Date: 20100617
  Transmission Date: 20101027
  Serious: Yes (Other)
  Sender: FDA-Public Use
  Company Number: US-JNJFOC-20090907374

PATIENT
  Sex: Female
  Weight: 72.9 kg

DRUGS (11)
  1. DORIBAX [Suspect]
     Indication: PNEUMONIA ASPIRATION
     Route: 041
     Dates: start: 20090525, end: 20090601
  2. METHADONE [Concomitant]
     Indication: PAIN
     Route: 048
  3. METHADONE [Concomitant]
     Route: 048
  4. METHADONE [Concomitant]
     Route: 048
  5. METHADONE [Concomitant]
     Route: 048
  6. METHADONE [Concomitant]
     Route: 048
  7. METHADONE [Concomitant]
     Route: 048
  8. METHADONE [Concomitant]
     Route: 048
  9. VORICONAZOLE [Concomitant]
     Indication: PNEUMONIA ASPIRATION
     Route: 048
  10. LEVALBUTEROL HCL [Concomitant]
     Indication: ACUTE RESPIRATORY DISTRESS SYNDROME
  11. PANTOPRAZOLE [Concomitant]
     Indication: GASTROINTESTINAL DISORDER THERAPY
     Route: 042

REACTIONS (1)
  - LEUKOENCEPHALOPATHY [None]
